FAERS Safety Report 7320345-5 (Version None)
Quarter: 2011Q1

REPORT INFORMATION
  Report Type: 
  Country: None (occurrence: None)
  Receive Date: 20110228
  Receipt Date: 20110218
  Transmission Date: 20110831
  Serious: Yes (Hospitalization)
  Sender: FDA-Public Use
  Company Number: A0751361A

PATIENT
  Age: 65 Year
  Sex: Male
  Weight: 145.5 kg

DRUGS (1)
  1. AVANDIA [Suspect]
     Dosage: 8MG PER DAY
     Route: 065
     Dates: start: 20000101, end: 20070601

REACTIONS (5)
  - CARDIAC DISORDER [None]
  - WEIGHT INCREASED [None]
  - HEART RATE IRREGULAR [None]
  - ARTERIAL OCCLUSIVE DISEASE [None]
  - FATIGUE [None]
